FAERS Safety Report 22329153 (Version 1)
Quarter: 2023Q2

REPORT INFORMATION
  Report Type: Spontaneous
  Country: US (occurrence: None)
  Receive Date: 20230517
  Receipt Date: 20230517
  Transmission Date: 20230722
  Serious: No
  Sender: FDA-Public Use
  Company Number: US-ROCHE-3233287

PATIENT

DRUGS (1)
  1. EVRYSDI [Suspect]
     Active Substance: RISDIPLAM
     Indication: Product used for unknown indication
     Route: 065

REACTIONS (4)
  - Migraine [Recovered/Resolved]
  - Headache [Unknown]
  - Feeling abnormal [Unknown]
  - Insomnia [Unknown]
